FAERS Safety Report 6375578-1 (Version None)
Quarter: 2009Q3

REPORT INFORMATION
  Report Type: 
  Country: None (occurrence: None)
  Receive Date: 20090924
  Receipt Date: 20090825
  Transmission Date: 20100115
  Serious: Yes (Other)
  Sender: FDA-Public Use
  Company Number: AU-MERCK-0908USA04305

PATIENT
  Age: 78 Year
  Sex: Female

DRUGS (7)
  1. FOSAMAX PLUS D [Suspect]
     Route: 048
     Dates: end: 20090701
  2. FOSAMAX PLUS D [Suspect]
     Route: 048
     Dates: start: 20090819
  3. FOSAMAX [Suspect]
     Route: 048
  4. LIPITOR [Concomitant]
     Route: 065
  5. PARIET [Concomitant]
     Route: 065
  6. VESICARE [Concomitant]
     Route: 065
  7. HIPREX [Concomitant]
     Route: 065

REACTIONS (6)
  - ARTHRALGIA [None]
  - BACK PAIN [None]
  - INFLUENZA LIKE ILLNESS [None]
  - MALIGNANT MELANOMA [None]
  - MYALGIA [None]
  - NECK PAIN [None]
